FAERS Safety Report 8011187-6 (Version None)
Quarter: 2011Q4

REPORT INFORMATION
  Report Type: 
  Country: None (occurrence: None)
  Receive Date: 20111228
  Receipt Date: 20111219
  Transmission Date: 20120403
  Serious: Yes (Hospitalization, Other)
  Sender: FDA-Public Use
  Company Number: US-BAYER-2011-049734

PATIENT
  Age: 41 Year
  Sex: Female
  Weight: 90 kg

DRUGS (8)
  1. DROSPIRENONE AND ETHINYL ESTRADIOL [Suspect]
     Indication: PREMENSTRUAL SYNDROME
  2. WELLBUTRIN [Concomitant]
     Dosage: 300 MG,
     Route: 048
  3. PROVIGIL [Concomitant]
     Dosage: 200 MG, BID
     Route: 048
  4. DROSPIRENONE AND ETHINYL ESTRADIOL [Suspect]
     Indication: MENSTRUATION IRREGULAR
     Dosage: UNK
     Route: 048
     Dates: start: 20080802, end: 20090728
  5. RELAFEN [Concomitant]
     Dosage: 750 MG, BID
     Route: 048
  6. LYRICA [Concomitant]
     Dosage: UNK
     Route: 048
  7. RESTORIL [Concomitant]
     Dosage: 15 MG, ONCE
     Route: 048
  8. YASMIN [Suspect]
     Indication: MENSTRUATION IRREGULAR
     Dosage: UNK
     Route: 048
     Dates: start: 20060601, end: 20080603

REACTIONS (13)
  - PANIC ATTACK [None]
  - ANXIETY [None]
  - LOSS OF CONSCIOUSNESS [None]
  - PAIN [None]
  - DEEP VEIN THROMBOSIS [None]
  - FATIGUE [None]
  - CHEST PAIN [None]
  - BRONCHITIS CHRONIC [None]
  - CARDIOMEGALY [None]
  - DEPRESSION [None]
  - GENERAL PHYSICAL HEALTH DETERIORATION [None]
  - EMOTIONAL DISTRESS [None]
  - PULMONARY EMBOLISM [None]
